FAERS Safety Report 6019911-9 (Version None)
Quarter: 2008Q4

REPORT INFORMATION
  Report Type: 
  Country: None (occurrence: None)
  Receive Date: 20081223
  Receipt Date: 20081208
  Transmission Date: 20090506
  Serious: Yes (Hospitalization)
  Sender: FDA-Public Use
  Company Number: KV200801000

PATIENT
  Age: 69 Year
  Sex: Male
  Weight: 98.4 kg

DRUGS (1)
  1. ISOSORBIDE MONONITRATE [Suspect]
     Indication: CHEST PAIN
     Dosage: 60 MG BID, ORAL
     Route: 048

REACTIONS (2)
  - BLOOD PRESSURE DECREASED [None]
  - PRODUCT QUALITY ISSUE [None]
